FAERS Safety Report 6232625-5 (Version None)
Quarter: 2009Q2

REPORT INFORMATION
  Report Type: 
  Country: None (occurrence: None)
  Receive Date: 20090615
  Receipt Date: 20090615
  Transmission Date: 20091009
  Serious: No
  Sender: FDA-Public Use
  Company Number: None

PATIENT
  Sex: Male
  Weight: 97.0698 kg

DRUGS (9)
  1. ROPINIROLE HYDROCHLORIDE [Suspect]
     Indication: RESTLESS LEGS SYNDROME
     Dosage: 1 MG QHS ORAL
     Route: 048
     Dates: start: 20090501
  2. LEVOXYL [Concomitant]
  3. HYZAAR [Concomitant]
  4. PACERONE [Concomitant]
  5. TOPROL-XL [Concomitant]
  6. DYAZIDE [Concomitant]
  7. ULTRAM [Concomitant]
  8. LORCET-HD [Concomitant]
  9. VYTORIN [Concomitant]

REACTIONS (1)
  - TREATMENT FAILURE [None]
